FAERS Safety Report 4516583-7 (Version None)
Quarter: 2004Q4

REPORT INFORMATION
  Report Type: 
  Country: None (occurrence: None)
  Receive Date: 20041012
  Receipt Date: 20040702
  Transmission Date: 20050328
  Serious: No
  Sender: FDA-Public Use
  Company Number: A03200402196

PATIENT
  Sex: Male

DRUGS (3)
  1. UROXATRAL [Suspect]
     Dosage: ORAL
     Route: 048
  2. MULTIVITAMIN [Concomitant]
  3. SAW PALMETTO [Concomitant]

REACTIONS (1)
  - ANXIETY [None]
